FAERS Safety Report 23220595 (Version 1)
Quarter: 2023Q4

REPORT INFORMATION
  Report Type: Spontaneous
  Country: CN (occurrence: CN)
  Receive Date: 20231123
  Receipt Date: 20231123
  Transmission Date: 20240110
  Serious: Yes (Other)
  Sender: FDA-Public Use
  Company Number: CN-91110000556821568D-8a8d80a48b460

PATIENT
  Age: 86 Year
  Sex: Male
  Weight: 50 kg

DRUGS (3)
  1. OLANZAPINE [Suspect]
     Active Substance: OLANZAPINE
     Indication: Psychotic symptom
     Dosage: 10MG,QD
     Route: 048
     Dates: start: 20230915, end: 20231111
  2. OLANZAPINE [Suspect]
     Active Substance: OLANZAPINE
     Indication: Dementia Alzheimer^s type
  3. ALPRAZOLAM [Suspect]
     Active Substance: ALPRAZOLAM
     Indication: Sleep disorder
     Route: 048
     Dates: start: 20230917, end: 20231107

REACTIONS (3)
  - Hypertonia [Recovering/Resolving]
  - Drooling [Recovering/Resolving]
  - Asthenia [Recovering/Resolving]

NARRATIVE: CASE EVENT DATE: 20231107
